FAERS Safety Report 5125379-7 (Version None)
Quarter: 2006Q4

REPORT INFORMATION
  Report Type: 
  Country: None (occurrence: None)
  Receive Date: 20061011
  Receipt Date: 20060914
  Transmission Date: 20070319
  Serious: Yes (Other)
  Sender: FDA-Public Use
  Company Number: PHBS2006JP14355

PATIENT
  Age: 70 Year
  Sex: Male

DRUGS (10)
  1. GLEEVEC [Suspect]
     Indication: GASTROINTESTINAL STROMAL TUMOUR
     Dosage: 400 MG/D
     Route: 048
     Dates: start: 20050816, end: 20050829
  2. GLEEVEC [Suspect]
     Dosage: 300 MG/D
     Route: 048
     Dates: start: 20050830, end: 20051031
  3. GLEEVEC [Suspect]
     Dosage: 200 MG/D
     Route: 048
     Dates: start: 20051207, end: 20051220
  4. GLEEVEC [Suspect]
     Dosage: 100 MG/D
     Route: 048
     Dates: start: 20060207, end: 20060214
  5. GLEEVEC [Suspect]
     Dosage: 200 MG/D
     Route: 048
     Dates: start: 20060215, end: 20060306
  6. GLEEVEC [Suspect]
     Dosage: 200 MG/D
     Route: 048
     Dates: start: 20060312, end: 20060516
  7. GLEEVEC [Suspect]
     Dosage: 200 MG/D
     Route: 048
     Dates: start: 20060628, end: 20060628
  8. CHEMOTHERAPEUTICS,OTHER [Concomitant]
  9. FAMOTIDINE [Concomitant]
     Dosage: 10 MG/D
     Route: 048
     Dates: start: 20050914
  10. FERROMIA [Concomitant]
     Dates: start: 20050914, end: 20060517

REACTIONS (9)
  - DRUG ERUPTION [None]
  - DYSHIDROSIS [None]
  - ERYTHEMA [None]
  - FACE OEDEMA [None]
  - HYPERHIDROSIS [None]
  - NOCTURIA [None]
  - OEDEMA [None]
  - PRURITUS [None]
  - PURPURA [None]
